FAERS Safety Report 17227979 (Version 1)
Quarter: 2020Q1

REPORT INFORMATION
  Report Type: Spontaneous
  Country: US (occurrence: US)
  Receive Date: 20200102
  Receipt Date: 20200102
  Transmission Date: 20200409
  Serious: No
  Sender: FDA-Public Use
  Company Number: None

PATIENT
  Age: 6 Year
  Sex: Male
  Weight: 23.85 kg

DRUGS (3)
  1. GUMMY MULTIVITAMIN [Concomitant]
  2. GUMMY PROBIOTIC [Concomitant]
  3. METHYLPHENIDATE ER 18 MG TAB [Suspect]
     Active Substance: METHYLPHENIDATE
     Indication: ATTENTION DEFICIT/HYPERACTIVITY DISORDER
     Dosage: ?          QUANTITY:1 TABLET(S);?
     Route: 048
     Dates: start: 20191130

REACTIONS (7)
  - Dyspepsia [None]
  - Nausea [None]
  - Headache [None]
  - Impulsive behaviour [None]
  - Distractibility [None]
  - Product substitution issue [None]
  - Restlessness [None]

NARRATIVE: CASE EVENT DATE: 20191217
